FAERS Safety Report 7364711-0 (Version None)
Quarter: 2011Q1

REPORT INFORMATION
  Report Type: 
  Country: None (occurrence: None)
  Receive Date: 20110321
  Receipt Date: 20110310
  Transmission Date: 20110831
  Serious: Yes (Hospitalization)
  Sender: FDA-Public Use
  Company Number: US-ASTRAZENECA-2011SE13409

PATIENT
  Age: 68 Year
  Sex: Male

DRUGS (1)
  1. SEROQUEL [Suspect]
     Indication: BIPOLAR DISORDER
     Dosage: TOTAL DAILY DOSAGE:200 MG , TWO TIMES A DAY
     Route: 048

REACTIONS (5)
  - DYSTONIA [None]
  - MUSCLE TWITCHING [None]
  - DRUG SCREEN POSITIVE [None]
  - OVERDOSE [None]
  - ASTHENIA [None]
